FAERS Safety Report 18927166 (Version 1)
Quarter: 2021Q1

REPORT INFORMATION
  Report Type: Spontaneous
  Country: US (occurrence: US)
  Receive Date: 20210219
  Receipt Date: 20210219
  Transmission Date: 20210420
  Serious: Yes (Other)
  Sender: FDA-Public Use
  Company Number: None

PATIENT
  Age: 51 Year
  Sex: Male

DRUGS (1)
  1. AQAUMIRA WATER TREATMENT CHLORINE DIOXIDE [Suspect]
     Active Substance: CHLORINE DIOXIDE\WATER
     Indication: COVID-19

REACTIONS (1)
  - Adverse drug reaction [None]
